FAERS Safety Report 8476088-8 (Version None)
Quarter: 2012Q2

REPORT INFORMATION
  Report Type: 
  Country: None (occurrence: None)
  Receive Date: 20120402
  Receipt Date: 20110413
  Transmission Date: 20120825
  Serious: Yes (Hospitalization)
  Sender: FDA-Public Use
  Company Number: 276582USA

PATIENT
  Sex: Female

DRUGS (1)
  1. ALENDRONATE SODIUM [Suspect]
     Dosage: 70 MG
     Dates: start: 20060101

REACTIONS (3)
  - BLOOD PRESSURE INCREASED [None]
  - PARAESTHESIA [None]
  - HYPERSENSITIVITY [None]
